FAERS Safety Report 10846411 (Version 1)
Quarter: 2015Q1

REPORT INFORMATION
  Report Type: Spontaneous
  Country: FR (occurrence: FR)
  Receive Date: 20150220
  Receipt Date: 20150220
  Transmission Date: 20150721
  Serious: Yes (Hospitalization, Other)
  Sender: FDA-Public Use
  Company Number: FR-ABBVIE-15P-056-1347697-00

PATIENT
  Age: 44 Year
  Sex: Male

DRUGS (4)
  1. TRUVADA [Suspect]
     Active Substance: EMTRICITABINE\TENOFOVIR DISOPROXIL FUMARATE
     Indication: HIV INFECTION
     Dosage: 200/245 MG
     Route: 048
     Dates: start: 2010, end: 20141223
  2. COPEGUS [Concomitant]
     Active Substance: RIBAVIRIN
     Indication: HEPATITIS C
     Route: 048
     Dates: start: 20141118, end: 201412
  3. SOVALDI [Concomitant]
     Active Substance: SOFOSBUVIR
     Indication: HEPATITIS C
     Route: 048
     Dates: start: 20141118, end: 20141201
  4. KALETRA [Suspect]
     Active Substance: LOPINAVIR\RITONAVIR
     Indication: HIV INFECTION
     Dosage: 200/50 MG
     Route: 048
     Dates: start: 2010, end: 20141223

REACTIONS (10)
  - Acute kidney injury [Unknown]
  - Fanconi syndrome acquired [Recovering/Resolving]
  - Urine sodium abnormal [Unknown]
  - Urine uric acid increased [Unknown]
  - Deep vein thrombosis [Unknown]
  - Cachexia [Unknown]
  - Polydipsia [Unknown]
  - Fall [Unknown]
  - Staphylococcal sepsis [Unknown]
  - Hypouricaemia [Unknown]

NARRATIVE: CASE EVENT DATE: 20141222
